FAERS Safety Report 4643657-2 (Version None)
Quarter: 2005Q2

REPORT INFORMATION
  Report Type: 
  Country: None (occurrence: None)
  Receive Date: 20050425
  Receipt Date: 20050412
  Transmission Date: 20051028
  Serious: Yes (Disabling)
  Sender: FDA-Public Use
  Company Number: JP-JNJFOC-20050402589

PATIENT
  Age: 41 Year
  Sex: Male

DRUGS (3)
  1. TAVANIC [Suspect]
     Indication: TONSILLITIS
     Route: 049
     Dates: start: 20050204, end: 20050205
  2. TAVANIC [Suspect]
     Indication: LARYNGITIS
     Route: 049
     Dates: start: 20050204, end: 20050205
  3. TAVANIC [Suspect]
     Indication: PHARYNGITIS
     Route: 049
     Dates: start: 20050204, end: 20050205

REACTIONS (2)
  - MYOPATHY [None]
  - TENDONITIS [None]
